FAERS Safety Report 5848394-4 (Version None)
Quarter: 2008Q3

REPORT INFORMATION
  Report Type: 
  Country: None (occurrence: None)
  Receive Date: 20080814
  Receipt Date: 20080807
  Transmission Date: 20090109
  Serious: Yes (Death)
  Sender: FDA-Public Use
  Company Number: 2008JP003659

PATIENT
  Age: 57 Year
  Sex: Male

DRUGS (4)
  1. TACROLIMUS [Suspect]
     Dosage: 0.5 MG, BID;
  2. CYCLOSPORINE [Suspect]
     Indication: DRUG USE FOR UNKNOWN INDICATION
  3. CELLCEPT [Concomitant]
  4. PREDNISOLONE (PREDNISILONE) [Concomitant]

REACTIONS (3)
  - HAEMOLYSIS [None]
  - SEPSIS [None]
  - THROMBOCYTOPENIA [None]
